FAERS Safety Report 5545700-5 (Version None)
Quarter: 2007Q4

REPORT INFORMATION
  Report Type: 
  Country: None (occurrence: None)
  Receive Date: 20071211
  Receipt Date: 20070129
  Transmission Date: 20080405
  Serious: No
  Sender: FDA-Public Use
  Company Number: US-AMGEN-KDL208890

PATIENT
  Sex: Male

DRUGS (2)
  1. ENBREL [Suspect]
     Indication: RHEUMATOID ARTHRITIS
     Dates: start: 19990920, end: 20030101
  2. UNSPECIFIED MEDICATION [Concomitant]
     Route: 048
     Dates: start: 20030101

REACTIONS (2)
  - GROIN INFECTION [None]
  - RASH [None]
